FAERS Safety Report 6425976-2 (Version None)
Quarter: 2009Q4

REPORT INFORMATION
  Report Type: 
  Country: None (occurrence: None)
  Receive Date: 20091103
  Receipt Date: 20091103
  Transmission Date: 20100525
  Serious: Yes (Hospitalization)
  Sender: FDA-Public Use
  Company Number: None

PATIENT
  Age: 62 Year

DRUGS (1)
  1. VANCOMYCIN [Suspect]
     Dates: start: 20090419, end: 20090419

REACTIONS (7)
  - DIZZINESS [None]
  - FLUSHING [None]
  - HYPOTENSION [None]
  - NAUSEA [None]
  - OXYGEN SATURATION DECREASED [None]
  - RED MAN SYNDROME [None]
  - SYNCOPE [None]
